FAERS Safety Report 7623730-7 (Version None)
Quarter: 2011Q3

REPORT INFORMATION
  Report Type: 
  Country: None (occurrence: None)
  Receive Date: 20110720
  Receipt Date: 20110714
  Transmission Date: 20111222
  Serious: Yes (Other)
  Sender: FDA-Public Use
  Company Number: US-GLAXOSMITHKLINE-A0936830A

PATIENT
  Age: 48 Year
  Sex: Female

DRUGS (15)
  1. FLUOXETINE [Concomitant]
  2. PROPRANOLOL [Concomitant]
  3. KLOR-CON [Concomitant]
  4. VENTOLIN HFA [Concomitant]
  5. LORATADINE [Concomitant]
  6. LISINOPRIL [Concomitant]
  7. SUPER B COMPLEX [Concomitant]
  8. RANITIDINE [Concomitant]
  9. SINGULAIR [Concomitant]
  10. FUROSEMIDE [Concomitant]
  11. OXYCODONE HCL [Concomitant]
  12. ADVAIR DISKUS 100/50 [Suspect]
     Indication: ASTHMA
     Dosage: 1PUFF TWICE PER DAY
     Route: 055
     Dates: start: 20110201, end: 20110501
  13. FLEXERIL [Concomitant]
  14. LEVOTHYROXINE SODIUM [Concomitant]
  15. GLYBURIDE [Concomitant]

REACTIONS (3)
  - ASTHMA [None]
  - COUGH [None]
  - DYSPNOEA [None]
